FAERS Safety Report 15166036 (Version 3)
Quarter: 2018Q4

REPORT INFORMATION
  Report Type: Spontaneous
  Country: CA (occurrence: CA)
  Receive Date: 20180719
  Receipt Date: 20181231
  Transmission Date: 20190204
  Serious: Yes (Other)
  Sender: FDA-Public Use
  Company Number: CA-CELLTRION INC.-2018CA019710

PATIENT

DRUGS (8)
  1. INFLECTRA [Suspect]
     Active Substance: INFLIXIMAB-DYYB
     Dosage: 5 MG/KG, CYCLIC (EVERY 0, 2 6 WEEKS, THEN EVERT 8 WEEKS
     Route: 042
     Dates: start: 20180509
  2. INFLECTRA [Suspect]
     Active Substance: INFLIXIMAB-DYYB
     Indication: COLITIS ULCERATIVE
     Dosage: 10MG/KG EVERY 0, 2, 6 WEEKS, THEN EVERY 8 WEEKS, CYCLIC
     Route: 042
     Dates: start: 20180331
  3. INFLECTRA [Suspect]
     Active Substance: INFLIXIMAB-DYYB
     Dosage: 10MG/KG  EVERY 0, 2, 6 WEEKS, THEN EVERY 8 WEEKS, CYCLIC
     Route: 042
     Dates: start: 20180409
  4. INFLECTRA [Suspect]
     Active Substance: INFLIXIMAB-DYYB
     Dosage: 5 MG/KG, CYCLIC (EVERY 0, 2 6 WEEKS, THEN EVERT 8 WEEKS
     Route: 042
     Dates: start: 20181219
  5. PURINETHOL [Concomitant]
     Active Substance: MERCAPTOPURINE
     Dosage: UNK
     Dates: start: 20180921
  6. INFLECTRA [Suspect]
     Active Substance: INFLIXIMAB-DYYB
     Dosage: 450 MG, UNK
     Route: 042
     Dates: start: 20180509
  7. INFLECTRA [Suspect]
     Active Substance: INFLIXIMAB-DYYB
     Dosage: 5 MG/KG, CYCLIC (EVERY 0, 2 6 WEEKS, THEN EVERT 8 WEEKS
     Route: 042
     Dates: start: 20181024
  8. ACETAMINOPHEN. [Concomitant]
     Active Substance: ACETAMINOPHEN
     Dosage: UNK
     Dates: start: 20181024

REACTIONS (13)
  - Haematochezia [Not Recovered/Not Resolved]
  - Pruritus [Unknown]
  - Product use issue [Unknown]
  - Erythema [Recovered/Resolved]
  - Vision blurred [Recovered/Resolved]
  - Blood pressure fluctuation [Unknown]
  - Haemorrhoidal haemorrhage [Not Recovered/Not Resolved]
  - Pruritus [Recovering/Resolving]
  - Presyncope [Unknown]
  - Erythema [Unknown]
  - Incorrect dose administered [Unknown]
  - Drug ineffective [Unknown]
  - Paraesthesia [Recovering/Resolving]

NARRATIVE: CASE EVENT DATE: 20180331
